FAERS Safety Report 7059466-3 (Version None)
Quarter: 2010Q4

REPORT INFORMATION
  Report Type: 
  Country: None (occurrence: None)
  Receive Date: 20101025
  Receipt Date: 20101014
  Transmission Date: 20110411
  Serious: No
  Sender: FDA-Public Use
  Company Number: US-B.I. PHARMACEUTICALS,INC./RIDGEFIELD-2009-BP-09592BP

PATIENT
  Sex: Female

DRUGS (10)
  1. SPIRIVA [Suspect]
     Indication: EMPHYSEMA
     Dosage: 18 MCG
  2. SPIRIVA [Suspect]
     Indication: CHRONIC OBSTRUCTIVE PULMONARY DISEASE
  3. SYMBICORT [Concomitant]
     Indication: EMPHYSEMA
  4. ALBUTEROL [Concomitant]
     Indication: EMPHYSEMA
  5. MEDICATIONS NOT FURTHER SPECIFIED [Concomitant]
     Indication: HYPERTENSION
  6. MEDICATIONS NOT FURTHER SPECIFIED [Concomitant]
     Indication: BLOOD CHOLESTEROL INCREASED
  7. MEDICATIONS NOT FURTHER SPECIFIED [Concomitant]
     Indication: CHRONIC OBSTRUCTIVE PULMONARY DISEASE
  8. MEDICATINS NOT FURTHER SPECIFIED [Concomitant]
     Indication: PAIN
  9. MEDICATINS NOT FURTHER SPECIFIED [Concomitant]
     Indication: GASTRIC DISORDER
  10. MEDICATINS NOT FURTHER SPECIFIED [Concomitant]
     Indication: OESOPHAGEAL DISORDER

REACTIONS (1)
  - DRUG EFFECT DECREASED [None]
